FAERS Safety Report 7903202-2 (Version None)
Quarter: 2011Q4

REPORT INFORMATION
  Report Type: 
  Country: None (occurrence: None)
  Receive Date: 20111107
  Receipt Date: 20111025
  Transmission Date: 20120403
  Serious: Yes (Other)
  Sender: FDA-Public Use
  Company Number: 1000025097

PATIENT
  Age: 83 Year
  Sex: Female

DRUGS (10)
  1. TENORMIN [Concomitant]
  2. DEPAS (ETIZOLAM) [Concomitant]
  3. FAMOATIDINE OD (FAMOTIDINE) [Concomitant]
  4. MEMANTINE HYDROCHLORIDE [Suspect]
     Indication: DEMENTIA ALZHEIMER'S TYPE
     Dosage: 5;10;15 MG (5 MG, 1 IN 1 D), ORAL
     Route: 048
     Dates: start: 20110816, end: 20110101
  5. MEMANTINE HYDROCHLORIDE [Suspect]
     Indication: DEMENTIA ALZHEIMER'S TYPE
     Dosage: 5;10;15 MG (5 MG, 1 IN 1 D), ORAL
     Route: 048
     Dates: start: 20110101, end: 20110101
  6. MEMANTINE HYDROCHLORIDE [Suspect]
     Indication: DEMENTIA ALZHEIMER'S TYPE
     Dosage: 20  MG (20 MG, 1 IN 1 D), ORAL
     Route: 048
     Dates: start: 20110907, end: 20111021
  7. ARICEPT [Concomitant]
  8. PRAVASTATIN SODIUM [Concomitant]
  9. AMLODIPINE OD (AMLODIPINE) [Concomitant]
  10. RIKKUNSHI-TO (RIKKUNSHI-TO) [Concomitant]

REACTIONS (4)
  - CONTUSION [None]
  - DIZZINESS [None]
  - FALL [None]
  - SUBDURAL HAEMATOMA [None]
